FAERS Safety Report 6037247-7 (Version None)
Quarter: 2009Q1

REPORT INFORMATION
  Report Type: 
  Country: None (occurrence: None)
  Receive Date: 20090114
  Receipt Date: 20090109
  Transmission Date: 20090719
  Serious: Yes (Hospitalization)
  Sender: FDA-Public Use
  Company Number: A0718146A

PATIENT
  Age: 57 Year
  Sex: Female
  Weight: 113.6 kg

DRUGS (7)
  1. AVANDIA [Suspect]
     Dosage: 8MG PER DAY
     Route: 048
     Dates: start: 20031106, end: 20071206
  2. ACCUPRIL [Concomitant]
  3. PROCARDIA XL [Concomitant]
  4. POTASSIUM CHLORIDE [Concomitant]
  5. NORVASC [Concomitant]
  6. BENICAR [Concomitant]
  7. NEXIUM [Concomitant]

REACTIONS (2)
  - CARDIAC FAILURE CONGESTIVE [None]
  - HEART INJURY [None]
